FAERS Safety Report 12452669 (Version 3)
Quarter: 2016Q3

REPORT INFORMATION
  Report Type: Spontaneous
  Country: US (occurrence: US)
  Receive Date: 20160609
  Receipt Date: 20160825
  Transmission Date: 20161109
  Serious: Yes (Other)
  Sender: FDA-Public Use
  Company Number: US-GLAXOSMITHKLINE-A0785572A

PATIENT
  Sex: Female

DRUGS (4)
  1. ADVAIR HFA [Suspect]
     Active Substance: FLUTICASONE PROPIONATE\SALMETEROL XINAFOATE
     Indication: CHRONIC OBSTRUCTIVE PULMONARY DISEASE
     Dosage: 250/50 MCG UNK, U
  2. ADVAIR HFA [Suspect]
     Active Substance: FLUTICASONE PROPIONATE\SALMETEROL XINAFOATE
     Indication: EMPHYSEMA
  3. ADVAIR HFA [Suspect]
     Active Substance: FLUTICASONE PROPIONATE\SALMETEROL XINAFOATE
     Indication: LUNG DISORDER
     Dosage: 100/50 MCG 1 PUFF(S), UNK
     Route: 055
     Dates: start: 2003
  4. VENTOLIN [Concomitant]
     Active Substance: ALBUTEROL SULFATE

REACTIONS (5)
  - Drug ineffective [Not Recovered/Not Resolved]
  - Lung neoplasm malignant [Unknown]
  - Dyspnoea [Unknown]
  - Medication error [Unknown]
  - Pneumonectomy [Unknown]

NARRATIVE: CASE EVENT DATE: 2004
